FAERS Safety Report 4531165-9 (Version None)
Quarter: 2004Q4

REPORT INFORMATION
  Report Type: 
  Country: None (occurrence: None)
  Receive Date: 20041216
  Receipt Date: 20041209
  Transmission Date: 20050328
  Serious: Yes (Hospitalization)
  Sender: FDA-Public Use
  Company Number: STA-AE-04-MTX-626

PATIENT
  Age: 75 Year
  Sex: Male

DRUGS (5)
  1. RHEUMATREX [Suspect]
     Indication: RHEUMATOID ARTHRITIS
     Dosage: 6 MG 1X PER 1 DAY, ORAL
     Route: 048
     Dates: start: 20041001
  2. RHEUMATREX [Suspect]
     Dosage: 22 MG 1X PER 1 DAY, UNK
     Dates: start: 20041001, end: 20041001
  3. PIPERACILLIN SODIUM [Concomitant]
  4. OMEPRAZOLE [Concomitant]
  5. CORTICOSTEROIDS (CORTICOSTEROIDS) [Concomitant]

REACTIONS (3)
  - ACCIDENTAL OVERDOSE [None]
  - BONE MARROW DEPRESSION [None]
  - INTERSTITIAL LUNG DISEASE [None]
